FAERS Safety Report 25739329 (Version 1)
Quarter: 2025Q3

REPORT INFORMATION
  Report Type: Spontaneous
  Country: JP (occurrence: JP)
  Receive Date: 20250829
  Receipt Date: 20250829
  Transmission Date: 20251020
  Serious: Yes (Hospitalization, Other)
  Sender: Medicap Laboratories
  Company Number: JP-Medicap-000027

PATIENT
  Age: 82 Year
  Sex: Male

DRUGS (3)
  1. SITAGLIPTIN [Concomitant]
     Active Substance: SITAGLIPTIN
     Indication: Product used for unknown indication
     Route: 065
  2. GLICLAZIDE [Concomitant]
     Active Substance: GLICLAZIDE
     Indication: Product used for unknown indication
     Route: 065
  3. METFORMIN [Suspect]
     Active Substance: METFORMIN HYDROCHLORIDE
     Indication: Product used for unknown indication
     Route: 065

REACTIONS (9)
  - Cardiac failure congestive [Recovered/Resolved]
  - Hypovolaemic shock [Recovered/Resolved]
  - Hypoxia [Recovered/Resolved]
  - Hyperkalaemia [Recovered/Resolved]
  - Vitamin B1 deficiency [Recovered/Resolved]
  - Dementia [Unknown]
  - Pleural effusion [Recovered/Resolved]
  - Lactic acidosis [Recovered/Resolved]
  - Renal impairment [Recovered/Resolved]
